FAERS Safety Report 20164225 (Version 1)
Quarter: 2021Q4

REPORT INFORMATION
  Report Type: Spontaneous
  Country: CN (occurrence: CN)
  Receive Date: 20211209
  Receipt Date: 20211209
  Transmission Date: 20220303
  Serious: Yes (Hospitalization, Other)
  Sender: FDA-Public Use
  Company Number: CN-SA-SAC20211207000203

PATIENT
  Age: 56 Year
  Sex: Male
  Weight: 55 kg

DRUGS (5)
  1. FLUOROURACIL [Suspect]
     Active Substance: FLUOROURACIL
     Indication: Neoplasm malignant
     Dosage: 4150 UG
     Dates: start: 20210624, end: 20210624
  2. OXALIPLATIN [Suspect]
     Active Substance: OXALIPLATIN
     Indication: Neoplasm malignant
     Dosage: 150 MG
     Route: 041
     Dates: start: 20210624, end: 20210624
  3. CETUXIMAB [Suspect]
     Active Substance: CETUXIMAB
     Indication: Neoplasm malignant
     Dosage: 800 MG, QOW
     Route: 041
     Dates: start: 20210624, end: 20210624
  4. DIISOPROPYLAMINE DICHLOROACETATE [Concomitant]
     Indication: Prophylaxis
     Dosage: 80 MG
     Route: 041
     Dates: start: 20210624, end: 20210624
  5. OMEPRAZOLE SODIUM [Concomitant]
     Active Substance: OMEPRAZOLE SODIUM
     Indication: Prophylaxis
     Dosage: 40 MG
     Route: 041
     Dates: start: 20210624, end: 20210624

REACTIONS (1)
  - Myelosuppression [Recovered/Resolved]
